FAERS Safety Report 8251183-7 (Version None)
Quarter: 2012Q1

REPORT INFORMATION
  Report Type: 
  Country: None (occurrence: None)
  Receive Date: 20120321
  Receipt Date: 20100608
  Transmission Date: 20120608
  Serious: No
  Sender: FDA-Public Use
  Company Number: PHHY2010US18858

PATIENT
  Age: 60 Year
  Sex: Female

DRUGS (7)
  1. ILARIS [Suspect]
     Indication: FAMILIAL COLD AUTOINFLAMMATORY SYNDROME
     Dosage: 2 X 150 MG EVERY 8 WEEKS ; 180 MG VIAL
     Dates: start: 20100128
  2. ILARIS [Suspect]
     Indication: FAMILIAL COLD AUTOINFLAMMATORY SYNDROME
     Dosage: 2 X 150 MG EVERY 8 WEEKS ; 180 MG VIAL
     Dates: start: 20081001
  3. ALLEGRA [Concomitant]
  4. HYDROCODONE BITARTRATE [Concomitant]
  5. PRAVASTATIN [Concomitant]
  6. HYDROCHLOROTHIAZIDE [Concomitant]
  7. NEXIUM [Concomitant]

REACTIONS (9)
  - CHILLS [None]
  - URTICARIA [None]
  - PRURITUS GENERALISED [None]
  - GAIT DISTURBANCE [None]
  - JOINT SWELLING [None]
  - DYSKINESIA [None]
  - PYREXIA [None]
  - PAIN [None]
  - INCORRECT DOSE ADMINISTERED [None]
